FAERS Safety Report 9249707 (Version 1)
Quarter: 2013Q2

REPORT INFORMATION
  Report Type: Spontaneous
  Country: US (occurrence: US)
  Receive Date: 20130423
  Receipt Date: 20130423
  Transmission Date: 20140414
  Serious: No
  Sender: FDA-Public Use
  Company Number: US-BRISTOL-MYERS SQUIBB COMPANY-17255142

PATIENT
  Age: 69 Year
  Sex: Male

DRUGS (15)
  1. YERVOY [Suspect]
     Dates: start: 20121220
  2. METOPROLOL [Concomitant]
  3. POTASSIUM [Concomitant]
  4. OXYCODONE [Concomitant]
  5. METOLAZONE [Concomitant]
  6. FUROSEMIDE [Concomitant]
  7. MEGESTROL [Concomitant]
  8. BABY ASPIRIN [Concomitant]
  9. VITAMIN B12 [Concomitant]
  10. OMEPRAZOLE [Concomitant]
  11. MAGNESIUM [Concomitant]
  12. FOLIC ACID [Concomitant]
  13. TAMSULOSIN [Concomitant]
  14. PRO-AIR [Concomitant]
  15. TEMAZEPAM [Concomitant]

REACTIONS (2)
  - Hypotension [Unknown]
  - Urinary tract infection [Unknown]
